FAERS Safety Report 9762775 (Version 1)
Quarter: 2013Q4

REPORT INFORMATION
  Report Type: Spontaneous
  Country: CA (occurrence: None)
  Receive Date: 20131213
  Receipt Date: 20131213
  Transmission Date: 20140711
  Serious: Yes (Hospitalization)
  Sender: FDA-Public Use
  Company Number: A1052952A

PATIENT
  Age: 29 Year
  Sex: Female

DRUGS (2)
  1. BUPROPION HYDROCHLORIDE [Suspect]
     Indication: TOBACCO USER
     Route: 042
  2. PURIFIED WATER [Concomitant]

REACTIONS (7)
  - Drug dependence [None]
  - Drug abuse [None]
  - Incorrect route of drug administration [None]
  - Drug withdrawal syndrome [None]
  - Irritability [None]
  - Depressed mood [None]
  - Affect lability [None]
